FAERS Safety Report 16474851 (Version 7)
Quarter: 2019Q4

REPORT INFORMATION
  Report Type: Report from Study
  Country: US (occurrence: US)
  Receive Date: 20190625
  Receipt Date: 20191213
  Transmission Date: 20200122
  Serious: No
  Sender: FDA-Public Use
  Company Number: PHEH2019US026836

PATIENT
  Age: 41 Year
  Sex: Male

DRUGS (1)
  1. GILENYA [Suspect]
     Active Substance: FINGOLIMOD HYDROCHLORIDE
     Indication: MULTIPLE SCLEROSIS
     Dosage: 0.5 MG, QD
     Route: 048
     Dates: start: 20190621

REACTIONS (11)
  - Oropharyngeal pain [Unknown]
  - Gastritis [Not Recovered/Not Resolved]
  - Fatigue [Unknown]
  - Headache [Not Recovered/Not Resolved]
  - Chest pain [Not Recovered/Not Resolved]
  - Abdominal pain [Unknown]
  - Gastrooesophageal reflux disease [Not Recovered/Not Resolved]
  - Eye irritation [Unknown]
  - Insomnia [Recovering/Resolving]
  - White blood cell count decreased [Not Recovered/Not Resolved]
  - Cough [Unknown]

NARRATIVE: CASE EVENT DATE: 20190621
